FAERS Safety Report 6190517-4 (Version None)
Quarter: 2009Q2

REPORT INFORMATION
  Report Type: 
  Country: None (occurrence: None)
  Receive Date: 20090514
  Receipt Date: 20090504
  Transmission Date: 20091009
  Serious: Yes (Other)
  Sender: FDA-Public Use
  Company Number: PHHY2009CA17322

PATIENT
  Sex: Male
  Weight: 60 kg

DRUGS (1)
  1. DIOVAN T30230++HY [Suspect]
     Indication: HYPERTENSION
     Dosage: 160 MG PER DAY
     Dates: end: 20090429

REACTIONS (1)
  - PARKINSONIAN REST TREMOR [None]
